FAERS Safety Report 9915222 (Version 2)
Quarter: 2014Q4

REPORT INFORMATION
  Report Type: Report from Study
  Country: NL (occurrence: NL)
  Receive Date: 20140220
  Receipt Date: 20141016
  Transmission Date: 20150529
  Serious: Yes (Other)
  Sender: FDA-Public Use
  Company Number: NL-ASTRAZENECA-2014SE11165

PATIENT
  Age: 64 Year
  Sex: Male

DRUGS (4)
  1. ASCAL [Suspect]
     Active Substance: CARBASALATE
     Indication: ACUTE CORONARY SYNDROME
     Route: 048
     Dates: start: 20130919
  2. BIVALIRUDINE [Concomitant]
     Active Substance: BIVALIRUDIN
     Dosage: 4 HOURS (4,0 ML/HR)
  3. TICAGRELOR [Suspect]
     Active Substance: TICAGRELOR
     Indication: ACUTE CORONARY SYNDROME
     Route: 048
     Dates: start: 20130919
  4. ASCAL [Suspect]
     Active Substance: CARBASALATE
     Indication: ACUTE CORONARY SYNDROME
     Route: 048

REACTIONS (1)
  - Thrombosis in device [Recovered/Resolved with Sequelae]

NARRATIVE: CASE EVENT DATE: 20130919
